FAERS Safety Report 8788755 (Version 2)
Quarter: 2013Q4

REPORT INFORMATION
  Report Type: Spontaneous
  Country: US (occurrence: US)
  Receive Date: 20120916
  Receipt Date: 20131101
  Transmission Date: 20140711
  Serious: No
  Sender: FDA-Public Use
  Company Number: US-009507513-1209USA005678

PATIENT
  Age: 24 Year
  Sex: Female
  Weight: 82.54 kg

DRUGS (1)
  1. NEXPLANON [Suspect]
     Indication: CONTRACEPTION
     Dosage: 68 MG, 3 YEAR IMPLANT
     Route: 059
     Dates: start: 20120910

REACTIONS (2)
  - Complication of device insertion [Unknown]
  - No adverse event [Unknown]
